FAERS Safety Report 9294637 (Version 1)
Quarter: 2013Q1

REPORT INFORMATION
  Report Type: Spontaneous
  Country: US (occurrence: None)
  Receive Date: 20121227
  Receipt Date: 20121227
  Transmission Date: 20140127
  Serious: Yes (Hospitalization)
  Sender: FDA-Public Use
  Company Number: PHEH2012US011266

PATIENT
  Age: 41 Year
  Sex: Male

DRUGS (11)
  1. MYFORTIC [Suspect]
     Indication: RENAL TRANSPLANT
     Route: 048
     Dates: start: 20120502
  2. ZOSYN (PIPERACILLIN SODIUM, TAZOBACTAM SODIUM) [Concomitant]
  3. TOPRAL (SULTOPRIDE) [Concomitant]
  4. PROGRAF (TACROLIMUS) [Concomitant]
  5. PREDNISONE (PREDNISONE) [Concomitant]
  6. NORVASC (AMLODIPINE BESILATE) [Concomitant]
  7. HYZAAR (HYDROCHLOROTHIAZIDE, LOSARTAN POOTASSIUM) [Concomitant]
  8. DEPAKOTE (VALPROATE SEMISODIUM) [Concomitant]
  9. CORDARONE (AMIODARONE HYDROCHLORIDE) [Concomitant]
  10. CYTOVENE (GANCICLOVIR SODIUM) [Concomitant]
  11. CARDURA (DOXAZOSIN MESILATE) [Concomitant]

REACTIONS (1)
  - Lung infection [None]
